FAERS Safety Report 15084835 (Version 1)
Quarter: 2018Q2

REPORT INFORMATION
  Report Type: Spontaneous
  Country: TR (occurrence: TR)
  Receive Date: 20180628
  Receipt Date: 20180628
  Transmission Date: 20180711
  Serious: Yes (Hospitalization)
  Sender: FDA-Public Use
  Company Number: TR-NOVOPROD-607219

PATIENT
  Age: 6 Year
  Sex: Male
  Weight: 14 kg

DRUGS (7)
  1. SODIUM CARBONATE [Concomitant]
     Active Substance: SODIUM CARBONATE
     Indication: NEPHROPATHY
     Dosage: UNK
     Route: 048
  2. KETOSTERIL [Concomitant]
     Active Substance: AMINO ACIDS
     Indication: NEPHROPATHY
     Dosage: UNK
     Route: 048
  3. NORDITROPIN [Suspect]
     Active Substance: SOMATROPIN
     Dosage: UNK
     Route: 058
  4. DIDERAL [Concomitant]
     Active Substance: PROPRANOLOL HYDROCHLORIDE
     Indication: CARDIAC DISORDER
     Dosage: UNK
     Route: 048
  5. NORDITROPIN [Suspect]
     Active Substance: SOMATROPIN
     Indication: GROWTH HORMONE DEFICIENCY
     Dosage: 2.4 MG, QW(0,4 MG FOR 6 DAYS AND ONE DAY FOR PAUSE WEEKLY)
     Route: 058
     Dates: start: 20170607
  6. ROCALTROL [Concomitant]
     Active Substance: CALCITRIOL
     Indication: OSTEOPOROSIS
     Dosage: UNK
     Route: 048
  7. ENAPRIL [Concomitant]
     Active Substance: ENALAPRIL
     Indication: CARDIAC DISORDER
     Dosage: UNK
     Route: 048

REACTIONS (2)
  - Somnolence [Recovered/Resolved]
  - Mitochondrial myopathy [Not Recovered/Not Resolved]

NARRATIVE: CASE EVENT DATE: 20170720
